FAERS Safety Report 26166198 (Version 1)
Quarter: 2025Q4

REPORT INFORMATION
  Report Type: Spontaneous
  Country: US (occurrence: US)
  Receive Date: 20251216
  Receipt Date: 20251216
  Transmission Date: 20260118
  Serious: Yes (Hospitalization)
  Sender: BOEHRINGER INGELHEIM
  Company Number: US-BoehringerIngelheim-2025-BI-113900

PATIENT
  Age: 71 Year
  Sex: Female

DRUGS (1)
  1. JASCAYD [Suspect]
     Active Substance: NERANDOMILAST
     Indication: Idiopathic pulmonary fibrosis
     Dates: start: 202511, end: 202511

REACTIONS (4)
  - Chest discomfort [Recovered/Resolved]
  - Diarrhoea [Recovered/Resolved]
  - Nausea [Recovered/Resolved]
  - Dizziness [Recovered/Resolved]

NARRATIVE: CASE EVENT DATE: 20251101
